FAERS Safety Report 23179244 (Version 2)
Quarter: 2023Q4

REPORT INFORMATION
  Report Type: Spontaneous
  Country: US (occurrence: US)
  Receive Date: 20231113
  Receipt Date: 20231129
  Transmission Date: 20240110
  Serious: No
  Sender: FDA-Public Use
  Company Number: US-PFIZER INC-202300350915

PATIENT
  Age: 53 Year
  Sex: Female
  Weight: 62.585 kg

DRUGS (6)
  1. PAXLOVID [Suspect]
     Active Substance: NIRMATRELVIR\RITONAVIR
     Indication: COVID-19 treatment
     Dosage: 300MG/ 100 MG, 2X/DAY
     Dates: start: 20231019, end: 20231023
  2. HUMALOG [Concomitant]
     Active Substance: INSULIN LISPRO
     Dosage: UNK
     Dates: start: 20231001
  3. LIPITOR [Concomitant]
     Active Substance: ATORVASTATIN CALCIUM
     Dosage: UNK
     Dates: start: 20231001, end: 20231018
  4. LIPITOR [Concomitant]
     Active Substance: ATORVASTATIN CALCIUM
     Dosage: UNK
     Dates: start: 20231025
  5. ESTRADIOL [Concomitant]
     Active Substance: ESTRADIOL
     Dosage: UNK
  6. PROGESTERONE [Concomitant]
     Active Substance: PROGESTERONE
     Dosage: UNK, DAILY

REACTIONS (2)
  - Disease recurrence [Recovered/Resolved]
  - COVID-19 [Recovered/Resolved]

NARRATIVE: CASE EVENT DATE: 20231029
